FAERS Safety Report 15059722 (Version 1)
Quarter: 2018Q2

REPORT INFORMATION
  Report Type: Spontaneous
  Country: US (occurrence: US)
  Receive Date: 20180625
  Receipt Date: 20180625
  Transmission Date: 20180711
  Serious: Yes (Other)
  Sender: FDA-Public Use
  Company Number: US-SA-2018SA158983

PATIENT
  Age: 51 Year
  Sex: Female
  Weight: 101 kg

DRUGS (13)
  1. ONDANSETRON [Concomitant]
     Active Substance: ONDANSETRON
  2. PALONOSETRON. [Concomitant]
     Active Substance: PALONOSETRON HYDROCHLORIDE
  3. TAXOTERE [Suspect]
     Active Substance: DOCETAXEL
     Indication: BREAST CANCER FEMALE
     Dosage: 160, 166, 167 MG
     Route: 042
     Dates: start: 20150320, end: 20150320
  4. CARBOPLATIN. [Concomitant]
     Active Substance: CARBOPLATIN
  5. PERTUZUMAB. [Concomitant]
     Active Substance: PERTUZUMAB
  6. TRASTUZUMAB. [Concomitant]
     Active Substance: TRASTUZUMAB
  7. DEXAMETHASONE. [Concomitant]
     Active Substance: DEXAMETHASONE
  8. FAMOTIDINE. [Concomitant]
     Active Substance: FAMOTIDINE
  9. FOSAPREPITANT [Concomitant]
     Active Substance: FOSAPREPITANT
  10. LORAZEPAM. [Concomitant]
     Active Substance: LORAZEPAM
  11. TAXOTERE [Suspect]
     Active Substance: DOCETAXEL
     Dosage: 160, 166, 167 MG
     Route: 042
     Dates: start: 20150515, end: 20150515
  12. DIPHENHYDRAMINE. [Concomitant]
     Active Substance: DIPHENHYDRAMINE
  13. PEGFILGRASTIM [Concomitant]
     Active Substance: PEGFILGRASTIM

REACTIONS (1)
  - Alopecia [Not Recovered/Not Resolved]

NARRATIVE: CASE EVENT DATE: 20151115
